FAERS Safety Report 7473989-4 (Version None)
Quarter: 2011Q2

REPORT INFORMATION
  Report Type: 
  Country: None (occurrence: None)
  Receive Date: 20110511
  Receipt Date: 20091122
  Transmission Date: 20111010
  Serious: Yes (Death, Other)
  Sender: FDA-Public Use
  Company Number: US-BAYER-200939939NA

PATIENT
  Age: 52 Year
  Sex: Male
  Weight: 120.64 kg

DRUGS (22)
  1. DOXICYCLIN [Concomitant]
     Dosage: 100 MG, BID
     Route: 048
     Dates: start: 20020524
  2. FENTANYL [Concomitant]
     Dosage: 30 MG, UNK
     Route: 042
     Dates: start: 20020529, end: 20020529
  3. ALBUTEROL [Concomitant]
     Dosage: INHALANT
  4. PAVULON [Concomitant]
     Dosage: UNK
     Route: 042
     Dates: start: 20020529, end: 20020529
  5. HEPARIN [Concomitant]
     Dosage: 40000 U, UNK
     Route: 042
     Dates: start: 20020529
  6. TOPROL-XL [Concomitant]
     Dosage: 50 MG, QD
     Route: 048
     Dates: start: 20020524
  7. VERSED [Concomitant]
     Dosage: 5 MG, UNK
     Route: 042
     Dates: start: 20020529, end: 20020529
  8. EPINEPHRINE [Concomitant]
     Dosage: 10 MG, UNK
     Dates: start: 20020529
  9. FORANE [Concomitant]
     Dosage: UNK
     Route: 042
     Dates: start: 20020529
  10. LASIX [Concomitant]
     Dosage: 20 MG, UNK
     Route: 042
     Dates: start: 20020529, end: 20020529
  11. TRASYLOL [Suspect]
     Indication: CARDIOPULMONARY BYPASS
  12. PROTAMINE SULFATE [Concomitant]
     Dosage: 500 MG, UNK
     Route: 042
     Dates: start: 20020529
  13. ROCURONIUM [Concomitant]
     Dosage: UNK
     Route: 042
     Dates: start: 20020529, end: 20020529
  14. LIDOCAINE [Concomitant]
     Dosage: UNK
     Route: 042
     Dates: start: 20020529, end: 20020529
  15. LIPITOR [Concomitant]
     Dosage: 20 MG, QD
     Route: 048
     Dates: start: 20020524
  16. ZESTRIL [Concomitant]
     Dosage: 20 MG, QD
     Route: 048
     Dates: start: 20020524
  17. TRASYLOL [Suspect]
     Indication: CARDIOPLEGIA
  18. PLAVIX [Concomitant]
     Dosage: 75 MG, QD
     Dates: start: 20020524, end: 20020524
  19. LEVAQUIN [Concomitant]
     Dosage: 500 MG, UNK
     Route: 042
     Dates: start: 20020529
  20. TRASYLOL [Suspect]
     Indication: CORONARY ARTERY BYPASS
     Dosage: UNK
     Route: 042
     Dates: start: 20020529
  21. SOLU-MEDROL [Concomitant]
     Dosage: UNK
     Route: 042
     Dates: start: 20020529
  22. PHENYLEPHRINE HCL [Concomitant]
     Dosage: 250 MG, UNK
     Route: 042
     Dates: start: 20020529

REACTIONS (13)
  - DEATH [None]
  - RENAL IMPAIRMENT [None]
  - RENAL INJURY [None]
  - EMOTIONAL DISTRESS [None]
  - UNEVALUABLE EVENT [None]
  - RENAL FAILURE [None]
  - STRESS [None]
  - MULTI-ORGAN FAILURE [None]
  - ANXIETY [None]
  - PAIN [None]
  - ANHEDONIA [None]
  - INJURY [None]
  - FEAR [None]
